FAERS Safety Report 15410570 (Version 1)
Quarter: 2018Q3

REPORT INFORMATION
  Report Type: Report from Study
  Country: US (occurrence: US)
  Receive Date: 20180921
  Receipt Date: 20180921
  Transmission Date: 20181010
  Serious: Yes (Other)
  Sender: FDA-Public Use
  Company Number: US-ROCHE-1853243

PATIENT
  Age: 58 Year
  Sex: Female
  Weight: 48.58 kg

DRUGS (6)
  1. BENADRYL (ACRIVASTINE) [Concomitant]
  2. PERJETA [Suspect]
     Active Substance: PERTUZUMAB
     Indication: BREAST CANCER METASTATIC
     Dosage: ON HOLD AT LEAST DURING NOVEMBER
     Route: 042
     Dates: start: 20160804, end: 20161027
  3. HERCEPTIN [Suspect]
     Active Substance: TRASTUZUMAB
     Indication: BREAST CANCER METASTATIC
     Dosage: ON HOLD AT LEAST THROUGH NOVEMBER
     Route: 042
     Dates: start: 20160804, end: 20161027
  4. TAXOTERE [Concomitant]
     Active Substance: DOCETAXEL
     Indication: BREAST CANCER METASTATIC
     Route: 065
     Dates: start: 20160804, end: 20160915
  5. ABRAXANE [Concomitant]
     Active Substance: PACLITAXEL
     Indication: BREAST CANCER METASTATIC
     Route: 065
     Dates: start: 20160915, end: 20160915
  6. LOMOTIL (ATROPINE SULFATE/DIPHENOXYLATE HYDROCHLORIDE) [Concomitant]
     Indication: DIARRHOEA
     Dosage: 2 TABLETS EACH DOSAGE
     Route: 048
     Dates: start: 201608

REACTIONS (17)
  - Vomiting [Unknown]
  - Chest pain [Unknown]
  - Skin ulcer [Unknown]
  - Neuropathy peripheral [Unknown]
  - Cellulitis [Unknown]
  - Rash [Unknown]
  - Swelling [Unknown]
  - Blood potassium decreased [Unknown]
  - Restless legs syndrome [Unknown]
  - Visual impairment [Unknown]
  - Balance disorder [Unknown]
  - Weight decreased [Recovered/Resolved]
  - Cardiac dysfunction [Unknown]
  - Diarrhoea [Unknown]
  - Malaise [Unknown]
  - Alopecia [Unknown]
  - Pruritus [Unknown]

NARRATIVE: CASE EVENT DATE: 201610
